FAERS Safety Report 9260452 (Version 1)
Quarter: 2013Q2

REPORT INFORMATION
  Report Type: Report from Study
  Country: JP (occurrence: JP)
  Receive Date: 20130429
  Receipt Date: 20130429
  Transmission Date: 20140414
  Serious: Yes (Death, Other)
  Sender: FDA-Public Use
  Company Number: JP-CELGENEUS-087-21880-11032899

PATIENT
  Age: 63 Year
  Sex: Female

DRUGS (18)
  1. REVLIMID [Suspect]
     Indication: PLASMA CELL MYELOMA
     Dosage: 25 MILLIGRAM
     Route: 048
     Dates: start: 20110124, end: 20110206
  2. REVLIMID [Suspect]
     Indication: PLASMA CELL MYELOMA
     Dosage: 15 MILLIGRAM
     Route: 048
     Dates: start: 20110225, end: 20110310
  3. LENADEX [Suspect]
     Indication: PLASMA CELL MYELOMA
     Dosage: 20 MILLIGRAM
     Route: 048
     Dates: start: 20110124, end: 20110131
  4. LENADEX [Suspect]
     Indication: REFRACTORY CANCER
  5. SALOBEL [Concomitant]
     Indication: PRODUCT USED FOR UNKNOWN INDICATION
     Dosage: 200 MILLIGRAM
     Route: 048
     Dates: start: 20110124, end: 20110220
  6. SALOBEL [Concomitant]
     Dosage: 200 MILLIGRAM
     Route: 048
     Dates: start: 20110225, end: 20110310
  7. LANSOPRAZOLE [Concomitant]
     Indication: PROPHYLAXIS
     Dosage: 15 MILLIGRAM
     Route: 048
     Dates: start: 20110124, end: 20110220
  8. LANSOPRAZOLE [Concomitant]
     Dosage: 15 MILLIGRAM
     Route: 048
     Dates: start: 20110225, end: 20110310
  9. LASIX [Concomitant]
     Indication: PRODUCT USED FOR UNKNOWN INDICATION
     Dosage: 10 MILLIGRAM
     Route: 041
     Dates: start: 20110124, end: 20110125
  10. PLATELET [Concomitant]
     Indication: PRODUCT USED FOR UNKNOWN INDICATION
     Dosage: 10 UNITS
     Route: 041
     Dates: start: 20110226, end: 20110227
  11. PLATELET [Concomitant]
     Dosage: 10 UNITS
     Route: 041
     Dates: start: 20110301, end: 20110307
  12. PLATELET [Concomitant]
     Dosage: 10 UNITS
     Route: 041
     Dates: start: 20110309, end: 20110316
  13. PLATELET [Concomitant]
     Route: 041
     Dates: start: 20110125, end: 20110125
  14. RED BLOOD CELLS [Concomitant]
     Indication: PRODUCT USED FOR UNKNOWN INDICATION
     Dosage: 2 UNITS
     Route: 041
     Dates: start: 20110302, end: 20110303
  15. RED BLOOD CELLS [Concomitant]
     Dosage: 2 UNITS
     Route: 041
     Dates: start: 20110311, end: 20110312
  16. RED BLOOD CELLS [Concomitant]
     Route: 041
     Dates: start: 20110126, end: 20110126
  17. PENTAGIN [Concomitant]
     Indication: PRODUCT USED FOR UNKNOWN INDICATION
     Dosage: 15 MILLIGRAM
     Route: 041
     Dates: start: 20110310, end: 20110310
  18. FENTANYL [Concomitant]
     Indication: PRODUCT USED FOR UNKNOWN INDICATION
     Dosage: 1 MILLIGRAM
     Route: 041
     Dates: start: 20110312, end: 20110317

REACTIONS (10)
  - Febrile neutropenia [Fatal]
  - Gamma-glutamyltransferase increased [Unknown]
  - Febrile neutropenia [Recovered/Resolved]
  - Thrombocytopenia [Unknown]
  - Haemoglobin decreased [Unknown]
  - Blood alkaline phosphatase increased [Unknown]
  - C-reactive protein increased [Unknown]
  - Blood lactate dehydrogenase increased [Unknown]
  - Blood bilirubin increased [Unknown]
  - Blood urea increased [Unknown]
